FAERS Safety Report 25884099 (Version 1)
Quarter: 2025Q4

REPORT INFORMATION
  Report Type: Spontaneous
  Country: US (occurrence: None)
  Receive Date: 20251003
  Receipt Date: 20251003
  Transmission Date: 20260117
  Serious: No
  Sender: FDA-CTU
  Company Number: None

PATIENT

DRUGS (1)
  1. GOODYS EXTRA STRENGTH [Suspect]
     Active Substance: ACETAMINOPHEN\ASPIRIN\CAFFEINE
     Indication: Headache
     Dosage: OTHER QUANTITY : 1 1;?FREQUENCY : EVERY 6 HOURS;?
     Route: 048
     Dates: start: 20250915, end: 20250917

REACTIONS (1)
  - Expired product administered [None]

NARRATIVE: CASE EVENT DATE: 20250917
